FAERS Safety Report 9551292 (Version 1)
Quarter: 2013Q3

REPORT INFORMATION
  Report Type: Spontaneous
  Country: US (occurrence: US)
  Receive Date: 20130925
  Receipt Date: 20130925
  Transmission Date: 20140515
  Serious: No
  Sender: FDA-Public Use
  Company Number: US-009507513-1309USA010060

PATIENT
  Age: 90 Year
  Sex: Male

DRUGS (13)
  1. ZOCOR [Suspect]
     Indication: LIPIDS ABNORMAL
     Dosage: 10 MG, QD
     Route: 048
     Dates: start: 1997
  2. ZOCOR [Suspect]
     Dosage: 20 MG, QD
     Route: 048
  3. AMLODIPINE [Suspect]
  4. SEROQUEL [Concomitant]
  5. SERTRALINE HYDROCHLORIDE [Concomitant]
  6. ALBUTEROL [Concomitant]
  7. ACETAMINOPHEN [Concomitant]
  8. LACTASE [Concomitant]
  9. SORBITOL [Concomitant]
  10. ASPIRIN [Concomitant]
  11. CHOLECALCIFEROL [Concomitant]
  12. CALCIUM CARBONATE [Concomitant]
  13. HYDRALAZINE [Concomitant]

REACTIONS (1)
  - Angina pectoris [Unknown]
